FAERS Safety Report 23367622 (Version 2)
Quarter: 2024Q1

REPORT INFORMATION
  Report Type: Report from Study
  Country: NL (occurrence: NL)
  Receive Date: 20240104
  Receipt Date: 20240104
  Transmission Date: 20240409
  Serious: Yes (Other)
  Sender: FDA-Public Use
  Company Number: NL-VER-202300103

PATIENT
  Age: 62 Year
  Sex: Male

DRUGS (1)
  1. TRIPTORELIN PAMOATE [Suspect]
     Active Substance: TRIPTORELIN PAMOATE
     Indication: Prostate cancer
     Dosage: 6 M
     Route: 030

REACTIONS (9)
  - Disturbance in attention [Recovered/Resolved]
  - Gynaecomastia [Recovered/Resolved]
  - Hot flush [Recovered/Resolved]
  - Erectile dysfunction [Recovered/Resolved]
  - Injection site pain [Recovered/Resolved]
  - Arthralgia [Recovered/Resolved]
  - Muscle atrophy [Recovered/Resolved]
  - Osteoporosis [Recovered/Resolved]
  - Adverse event [Recovered/Resolved]
